FAERS Safety Report 4973371-5 (Version None)
Quarter: 2006Q2

REPORT INFORMATION
  Report Type: 
  Country: None (occurrence: None)
  Receive Date: 20060414
  Receipt Date: 20060410
  Transmission Date: 20061013
  Serious: Yes (Hospitalization)
  Sender: FDA-Public Use
  Company Number: ES-BOEHRINGER INGELHEIM PHARMACEUTICALS, INC.-2006-DE-01880GD

PATIENT
  Age: 74 Year
  Sex: Male

DRUGS (5)
  1. PERSANTIN [Suspect]
     Route: 048
  2. ALMAX [Suspect]
     Route: 048
  3. DUPHALAC [Suspect]
     Route: 048
  4. ADALGUR [Suspect]
     Dosage: 200 MG GLAFENINA, 2 MG TIOCOLCHICOSIDO
     Route: 048
  5. UNKNOWN TOPICAL [Suspect]
     Route: 061

REACTIONS (1)
  - DUODENAL ULCER HAEMORRHAGE [None]
